FAERS Safety Report 23345060 (Version 1)
Quarter: 2023Q4

REPORT INFORMATION
  Report Type: Spontaneous
  Country: US (occurrence: US)
  Receive Date: 20231228
  Receipt Date: 20231228
  Transmission Date: 20240110
  Serious: No
  Sender: FDA-Public Use
  Company Number: US-OPELLA-2023OHG020166

PATIENT
  Sex: Male

DRUGS (2)
  1. ICY HOT MEDICATED, BACK [Suspect]
     Active Substance: MENTHOL
     Indication: Product used for unknown indication
  2. ICY HOT MEDICATED, BACK [Suspect]
     Active Substance: MENTHOL

REACTIONS (2)
  - No adverse event [Unknown]
  - Drug ineffective [Unknown]
